FAERS Safety Report 4656394-5 (Version None)
Quarter: 2005Q2

REPORT INFORMATION
  Report Type: 
  Country: None (occurrence: None)
  Receive Date: 20050504
  Receipt Date: 20050425
  Transmission Date: 20051028
  Serious: Yes (Hospitalization)
  Sender: FDA-Public Use
  Company Number: WAES 0503DEU00208

PATIENT
  Age: 55 Year
  Sex: Female

DRUGS (9)
  1. VIOXX [Suspect]
     Indication: RHEUMATOID ARTHRITIS
     Dosage: 25 MG/DAILY/PO
     Route: 048
     Dates: start: 20040224, end: 20040911
  2. TAB 0663-BLINDED THERAPY [Suspect]
     Indication: RHEUMATOID ARTHRITIS
     Dosage: PO
     Route: 048
     Dates: start: 20030605, end: 20040212
  3. TAB BLINDED THERAPY [Suspect]
     Indication: RHEUMATOID ARTHRITIS
     Dosage: PO
     Route: 048
     Dates: start: 20030605, end: 20040212
  4. HYPERICIN [Concomitant]
  5. LISINOPRIL [Concomitant]
  6. PIRETANIDE [Concomitant]
  7. PREDNISOLONE [Concomitant]
  8. SULFASALAZINE [Concomitant]
  9. THEOPHYLLINE [Concomitant]

REACTIONS (9)
  - APHASIA [None]
  - CEREBRAL ARTERY STENOSIS [None]
  - DYSPEPSIA [None]
  - ELECTROCARDIOGRAM ABNORMAL [None]
  - HEMIPARESIS [None]
  - NUCLEAR MAGNETIC RESONANCE IMAGING ABNORMAL [None]
  - PSYCHOTIC DISORDER [None]
  - SPEECH DISORDER [None]
  - TRANSIENT ISCHAEMIC ATTACK [None]
